FAERS Safety Report 23886964 (Version 1)
Quarter: 2024Q2

REPORT INFORMATION
  Report Type: Spontaneous
  Country: CA (occurrence: CA)
  Receive Date: 20240523
  Receipt Date: 20240523
  Transmission Date: 20240715
  Serious: Yes (Life-Threatening, Hospitalization, Other)
  Sender: FDA-Public Use
  Company Number: CA-009507513-2405CAN004660

PATIENT
  Age: 34 Year
  Sex: Female
  Weight: 51 kg

DRUGS (1)
  1. INVANZ [Suspect]
     Active Substance: ERTAPENEM SODIUM
     Indication: Chest wall abscess
     Dosage: UNK
     Route: 042

REACTIONS (4)
  - Anaphylactic reaction [Recovering/Resolving]
  - Endotracheal intubation [Recovering/Resolving]
  - Hypoxia [Recovering/Resolving]
  - Intensive care [Recovering/Resolving]
